FAERS Safety Report 4367483-7 (Version None)
Quarter: 2004Q2

REPORT INFORMATION
  Report Type: 
  Country: None (occurrence: None)
  Receive Date: 20040601
  Receipt Date: 20040521
  Transmission Date: 20050107
  Serious: Yes (Other)
  Sender: FDA-Public Use
  Company Number: 200414016US

PATIENT
  Sex: Male
  Weight: 109 kg

DRUGS (6)
  1. NILANDRON [Suspect]
     Indication: PROSTATE CANCER
     Dosage: DOSE: UNK
     Dates: start: 20020101
  2. LASIX [Concomitant]
  3. COUMADIN [Concomitant]
  4. CARDURA [Concomitant]
  5. COREG [Concomitant]
  6. CRESTOR [Concomitant]

REACTIONS (4)
  - ACQUIRED NIGHT BLINDNESS [None]
  - CATARACT [None]
  - COLOUR BLINDNESS [None]
  - VISUAL ACUITY REDUCED [None]
